FAERS Safety Report 18179266 (Version 1)
Quarter: 2020Q3

REPORT INFORMATION
  Report Type: Spontaneous
  Country: US (occurrence: US)
  Receive Date: 20200821
  Receipt Date: 20200821
  Transmission Date: 20201103
  Serious: Yes (Other)
  Sender: FDA-Public Use
  Company Number: US-SUN PHARMACEUTICAL INDUSTRIES LTD-2019R1-217967

PATIENT
  Age: 53 Year
  Sex: Male

DRUGS (2)
  1. NIACIN. [Suspect]
     Active Substance: NIACIN
     Dosage: 1.5 GRAM, DAILY
     Route: 065
  2. NIACIN. [Suspect]
     Active Substance: NIACIN
     Indication: HYPERLIPIDAEMIA
     Dosage: 1 GRAM, DAILY
     Route: 065

REACTIONS (3)
  - Cystoid macular oedema [Recovered/Resolved]
  - Disruption of the photoreceptor inner segment-outer segment [Recovering/Resolving]
  - Maculopathy [Recovering/Resolving]
